FAERS Safety Report 21578128 (Version 1)
Quarter: 2022Q4

REPORT INFORMATION
  Report Type: Spontaneous
  Country: CN (occurrence: CN)
  Receive Date: 20221110
  Receipt Date: 20221110
  Transmission Date: 20230113
  Serious: Yes (Hospitalization)
  Sender: FDA-Public Use
  Company Number: CN-Merck Healthcare KGaA-9362550

PATIENT
  Age: 63 Year
  Sex: Male
  Weight: 43 kg

DRUGS (4)
  1. ERBITUX [Suspect]
     Active Substance: CETUXIMAB
     Indication: Laryngeal cancer
     Dosage: 600 MG, DAILY
     Route: 041
     Dates: start: 20220924, end: 20220924
  2. FLUOROURACIL [Suspect]
     Active Substance: FLUOROURACIL
     Indication: Laryngeal cancer
     Dosage: 1.5 G, DAILY
     Route: 041
     Dates: start: 20220925, end: 20220928
  3. CISPLATIN [Suspect]
     Active Substance: CISPLATIN
     Indication: Laryngeal cancer
     Dosage: 30 MG, DAILY
     Route: 041
     Dates: start: 20220925, end: 20220926
  4. CISPLATIN [Suspect]
     Active Substance: CISPLATIN
     Dosage: UNK UNK, UNKNOWN
     Route: 041
     Dates: start: 20220927, end: 20220927

REACTIONS (1)
  - Myelosuppression [Recovering/Resolving]

NARRATIVE: CASE EVENT DATE: 20221017
